FAERS Safety Report 21171146 (Version 2)
Quarter: 2022Q3

REPORT INFORMATION
  Report Type: Spontaneous
  Country: US (occurrence: None)
  Receive Date: 20220804
  Receipt Date: 20220930
  Transmission Date: 20221026
  Serious: Yes (Other)
  Sender: FDA-Public Use
  Company Number: US-ROCHE-3150892

PATIENT
  Age: 66 Year

DRUGS (2)
  1. ACTIVASE [Suspect]
     Active Substance: ALTEPLASE
     Indication: Ischaemic stroke
     Dosage: ACTIVASE 100MG VIAL ;ONGOING: NO
     Route: 065
     Dates: start: 20220727
  2. ACTIVASE [Suspect]
     Active Substance: ALTEPLASE

REACTIONS (4)
  - Device issue [Unknown]
  - Treatment delayed [Unknown]
  - Poor quality product administered [Unknown]
  - No adverse event [Unknown]

NARRATIVE: CASE EVENT DATE: 20220727
